FAERS Safety Report 16631780 (Version 1)
Quarter: 2019Q3

REPORT INFORMATION
  Report Type: Spontaneous
  Country: US (occurrence: US)
  Receive Date: 20190725
  Receipt Date: 20190725
  Transmission Date: 20191004
  Serious: No
  Sender: FDA-Public Use
  Company Number: US-ABBVIE-18S-163-2591244-00

PATIENT
  Age: 62 Year
  Sex: Female
  Weight: 52.62 kg

DRUGS (5)
  1. COMPOUNDED T3 [Suspect]
     Active Substance: LIOTHYRONINE SODIUM
     Route: 048
     Dates: start: 2018
  2. COMPOUNDED T3 [Suspect]
     Active Substance: LIOTHYRONINE SODIUM
     Indication: THYROID DISORDER
     Route: 048
     Dates: start: 201811, end: 201811
  3. SYNTHROID [Suspect]
     Active Substance: LEVOTHYROXINE SODIUM
     Indication: THYROID DISORDER
     Route: 065
  4. COMPOUNDED T3 [Suspect]
     Active Substance: LIOTHYRONINE SODIUM
     Route: 048
     Dates: start: 201811, end: 2018
  5. CYTOMEL [Suspect]
     Active Substance: LIOTHYRONINE SODIUM
     Indication: THYROID DISORDER
     Route: 065

REACTIONS (6)
  - Weight increased [Recovering/Resolving]
  - Joint swelling [Recovering/Resolving]
  - Product availability issue [Unknown]
  - Feeling abnormal [Recovering/Resolving]
  - Hypothyroidism [Unknown]
  - Drug ineffective [Unknown]

NARRATIVE: CASE EVENT DATE: 201811
